FAERS Safety Report 8111432-2 (Version None)
Quarter: 2012Q1

REPORT INFORMATION
  Report Type: 
  Country: None (occurrence: None)
  Receive Date: 20120203
  Receipt Date: 20111207
  Transmission Date: 20120608
  Serious: No
  Sender: FDA-Public Use
  Company Number: US-GLAXOSMITHKLINE-A0957125A

PATIENT
  Age: 89 Year
  Sex: Female

DRUGS (6)
  1. CORTEF [Concomitant]
  2. ASPIRIN [Concomitant]
  3. COREG [Concomitant]
  4. SYNTHROID [Concomitant]
  5. LAMICTAL [Suspect]
     Indication: EPILEPSY
     Dosage: 25MG PER DAY
     Route: 048
     Dates: start: 20111203, end: 20111204
  6. IRON [Concomitant]

REACTIONS (3)
  - ILL-DEFINED DISORDER [None]
  - HYPOKINESIA [None]
  - EYELID DISORDER [None]
